FAERS Safety Report 6323702-9 (Version None)
Quarter: 2009Q3

REPORT INFORMATION
  Report Type: 
  Country: None (occurrence: None)
  Receive Date: 20090824
  Receipt Date: 20090605
  Transmission Date: 20100115
  Serious: No
  Sender: FDA-Public Use
  Company Number: US-ABBOTT-09P-163-0578349-00

PATIENT
  Sex: Female
  Weight: 66.738 kg

DRUGS (15)
  1. NIASPAN [Suspect]
     Indication: HIGH DENSITY LIPOPROTEIN DECREASED
     Dosage: 500MG EVERY NIGHT
     Dates: start: 20090601
  2. ASPIRIN [Concomitant]
     Indication: DRUG USE FOR UNKNOWN INDICATION
     Route: 048
  3. CRESTOR [Concomitant]
     Indication: DRUG USE FOR UNKNOWN INDICATION
     Route: 048
     Dates: start: 20080101
  4. CRESTOR [Concomitant]
     Route: 048
     Dates: start: 20081201
  5. MULTI-VITAMIN [Concomitant]
     Indication: DRUG USE FOR UNKNOWN INDICATION
     Route: 048
  6. CALCIUM [Concomitant]
     Indication: DRUG USE FOR UNKNOWN INDICATION
     Route: 048
  7. PEN-VEE K [Concomitant]
     Indication: DRUG USE FOR UNKNOWN INDICATION
     Route: 048
  8. XANAX [Concomitant]
     Indication: DRUG USE FOR UNKNOWN INDICATION
     Dosage: AS NEEDED DAILY
     Route: 048
  9. FLUCTACASONE [Concomitant]
     Indication: DRUG USE FOR UNKNOWN INDICATION
     Dosage: NASAL SPARY/TOPICALLY DAILY
  10. CELEBREX [Concomitant]
     Indication: DRUG USE FOR UNKNOWN INDICATION
     Route: 048
  11. AMBIEN CR [Concomitant]
     Indication: DRUG USE FOR UNKNOWN INDICATION
     Dosage: AT BEDTIME
     Route: 048
  12. DARVOCET [Concomitant]
     Indication: DRUG USE FOR UNKNOWN INDICATION
     Route: 048
  13. EEMT HORMONES [Concomitant]
     Indication: DRUG USE FOR UNKNOWN INDICATION
     Dosage: DAILY
     Route: 048
  14. METFORMIN HCL [Concomitant]
     Indication: DIABETES PROPHYLAXIS
     Dosage: DAILY
     Route: 048
  15. TIZANIDINE HCL [Concomitant]
     Indication: DRUG USE FOR UNKNOWN INDICATION
     Dosage: 4MG AT BEDTIME
     Route: 048

REACTIONS (6)
  - ADVERSE DRUG REACTION [None]
  - BURNING SENSATION [None]
  - ERYTHEMA [None]
  - HYPERHIDROSIS [None]
  - MYALGIA [None]
  - NIGHT SWEATS [None]
